FAERS Safety Report 26071408 (Version 2)
Quarter: 2025Q4

REPORT INFORMATION
  Report Type: Spontaneous
  Country: CN (occurrence: CN)
  Receive Date: 20251120
  Receipt Date: 20251124
  Transmission Date: 20260118
  Serious: Yes (Hospitalization, Other)
  Sender: Kenvue
  Company Number: CN-KENVUE-20251106159

PATIENT
  Age: 62 Year
  Weight: 48 kg

DRUGS (1)
  1. CHILDRENS MOTRIN [Suspect]
     Active Substance: IBUPROFEN
     Indication: Antipyresis
     Dosage: 6 MILLILITER, SINGLE

REACTIONS (2)
  - Hypovolaemic shock [Recovering/Resolving]
  - Off label use [Unknown]
